FAERS Safety Report 9695154 (Version 2)
Quarter: 2013Q4

REPORT INFORMATION
  Report Type: Spontaneous
  Country: IT (occurrence: IT)
  Receive Date: 20131119
  Receipt Date: 20131220
  Transmission Date: 20140711
  Serious: Yes (Hospitalization)
  Sender: FDA-Public Use
  Company Number: IT-MYLANLABS-2013S1025152

PATIENT
  Age: 55 Year
  Sex: Female

DRUGS (2)
  1. BROMAZEPAM [Suspect]
     Route: 048
     Dates: start: 20130527, end: 20130527
  2. SERTRALINE [Suspect]
     Route: 048
     Dates: start: 20130527, end: 20130527

REACTIONS (4)
  - Sopor [Recovered/Resolved]
  - Drug abuse [Recovered/Resolved]
  - Intentional self-injury [Recovered/Resolved]
  - Overdose [Recovered/Resolved]
